FAERS Safety Report 15905287 (Version 2)
Quarter: 2019Q1

REPORT INFORMATION
  Report Type: Report from Study
  Country: DE (occurrence: DE)
  Receive Date: 20190204
  Receipt Date: 20190211
  Transmission Date: 20190417
  Serious: No
  Sender: FDA-Public Use
  Company Number: DE-ROCHE-2258488

PATIENT
  Age: 56 Year
  Sex: Male
  Weight: 93 kg

DRUGS (10)
  1. PARACETAMOL [Concomitant]
     Active Substance: ACETAMINOPHEN
     Indication: PREMEDICATION
     Route: 042
     Dates: start: 20180620, end: 20180704
  2. PREDNISOLONE. [Concomitant]
     Active Substance: PREDNISOLONE
     Route: 040
     Dates: start: 20181219
  3. PARACETAMOL [Concomitant]
     Active Substance: ACETAMINOPHEN
     Route: 048
     Dates: start: 20181219
  4. VITAMIN D3 [Concomitant]
     Active Substance: CHOLECALCIFEROL
     Indication: MULTIPLE SCLEROSIS
     Route: 048
     Dates: start: 2016
  5. CETIRIZINE [Concomitant]
     Active Substance: CETIRIZINE HYDROCHLORIDE
     Indication: PREMEDICATION
     Route: 048
     Dates: start: 20181219
  6. OCRELIZUMAB. [Suspect]
     Active Substance: OCRELIZUMAB
     Route: 040
     Dates: start: 20181219
  7. OCRELIZUMAB. [Suspect]
     Active Substance: OCRELIZUMAB
     Indication: MULTIPLE SCLEROSIS
     Route: 040
     Dates: start: 20180620, end: 20180704
  8. PREDNISOLONE. [Concomitant]
     Active Substance: PREDNISOLONE
     Indication: PREMEDICATION
     Route: 042
     Dates: start: 20180620, end: 20180704
  9. L-THYROXIN [Concomitant]
     Active Substance: LEVOTHYROXINE SODIUM
     Indication: HYPOTHYROIDISM
     Route: 048
  10. FENISTIL (GERMANY) [Concomitant]
     Active Substance: DIMETHINDENE MALEATE
     Indication: PREMEDICATION
     Route: 042
     Dates: start: 20180620, end: 20180704

REACTIONS (1)
  - Influenza [Recovered/Resolved]

NARRATIVE: CASE EVENT DATE: 20180712
